FAERS Safety Report 8444410-4 (Version None)
Quarter: 2012Q2

REPORT INFORMATION
  Report Type: 
  Country: None (occurrence: None)
  Receive Date: 20120618
  Receipt Date: 20120613
  Transmission Date: 20120825
  Serious: Yes (Death, Life-Threatening, Other)
  Sender: FDA-Public Use
  Company Number: US-ELI_LILLY_AND_COMPANY-US201202003633

PATIENT
  Age: 73 Year
  Sex: Male

DRUGS (2)
  1. HUMULIN 70/30 [Suspect]
     Indication: DIABETES MELLITUS
     Dosage: UNK, UNKNOWN
     Route: 058
  2. HUMULIN 70/30 [Suspect]
     Dosage: UNK, UNKNOWN
     Route: 065

REACTIONS (6)
  - CORONARY ARTERY DISEASE [None]
  - CHRONIC OBSTRUCTIVE PULMONARY DISEASE [None]
  - VENTRICULAR FIBRILLATION [None]
  - CARDIOMYOPATHY [None]
  - EMPHYSEMA [None]
  - CARDIAC FAILURE CONGESTIVE [None]
